FAERS Safety Report 8970986 (Version 2)
Quarter: 2012Q4

REPORT INFORMATION
  Report Type: 
  Country: CH (occurrence: CH)
  Receive Date: 20121218
  Receipt Date: 20121231
  Transmission Date: 20130627
  Serious: Yes (Life-Threatening)
  Sender: FDA-Public Use
  Company Number: CH-UCBSA-073069

PATIENT
  Age: 36 Year
  Sex: Female

DRUGS (5)
  1. CIMZIA [Suspect]
     Indication: MUSCULOSKELETAL PAIN
     Dosage: ONCE
     Route: 058
     Dates: start: 20121126, end: 20121126
  2. CIMZIA [Suspect]
     Indication: ARTHRALGIA
     Dosage: ONCE
     Route: 058
     Dates: start: 20121126, end: 20121126
  3. PROLIA [Concomitant]
     Indication: OSTEOPOROSIS
     Route: 058
     Dates: start: 20120824
  4. SPIRICORT [Concomitant]
     Indication: MUSCULOSKELETAL PAIN
  5. SPIRICORT [Concomitant]
     Indication: ARTHRALGIA

REACTIONS (1)
  - Hypersensitivity [Recovered/Resolved]
